FAERS Safety Report 16994467 (Version 1)
Quarter: 2019Q4

REPORT INFORMATION
  Report Type: Spontaneous
  Country: US (occurrence: US)
  Receive Date: 20191105
  Receipt Date: 20191105
  Transmission Date: 20200122
  Serious: No
  Sender: FDA-Public Use
  Company Number: US-JNJFOC-20191037257

PATIENT
  Sex: Male

DRUGS (7)
  1. LAMOTRIGINE. [Concomitant]
     Active Substance: LAMOTRIGINE
     Dosage: IN THE A.M.
  2. SPRAVATO [Suspect]
     Active Substance: ESKETAMINE
     Dosage: 02-OCT-2019: LOT 19CG152X; EXPIRATION DATE AUG-2020?04-OCT-2019: LOT 19CG168; EXPIRATION DATE AUG-20
     Dates: start: 20190925
  3. SPRAVATO [Suspect]
     Active Substance: ESKETAMINE
     Indication: BIPOLAR I DISORDER
     Dates: start: 20190909
  4. OLANZAPINE. [Concomitant]
     Active Substance: OLANZAPINE
  5. SPRAVATO [Suspect]
     Active Substance: ESKETAMINE
     Dosage: 18-SEP-2019: LOT 19CG168,  EXPIRATION AUG 2020
     Dates: start: 20190916
  6. SEROQUEL [Concomitant]
     Active Substance: QUETIAPINE FUMARATE
     Dosage: EVENING
  7. ZOLOFT [Concomitant]
     Active Substance: SERTRALINE HYDROCHLORIDE

REACTIONS (2)
  - Depression [Unknown]
  - Product use in unapproved indication [Unknown]
